FAERS Safety Report 9183708 (Version 1)
Quarter: 2013Q1

REPORT INFORMATION
  Report Type: Spontaneous
  Country: US (occurrence: US)
  Receive Date: 20130322
  Receipt Date: 20130322
  Transmission Date: 20140127
  Serious: Yes (Other)
  Sender: FDA-Public Use
  Company Number: US-BRISTOL-MYERS SQUIBB COMPANY-16590788

PATIENT
  Age: 66 Year
  Sex: Female

DRUGS (1)
  1. ERBITUX [Suspect]
     Indication: HEPATIC CANCER
     Dosage: LAST DOSE -24APR2012

REACTIONS (6)
  - Myocardial infarction [Unknown]
  - Eating disorder [Unknown]
  - Weight decreased [Unknown]
  - Dysgeusia [Unknown]
  - Aptyalism [Unknown]
  - Asthenia [Unknown]
